FAERS Safety Report 24660412 (Version 1)
Quarter: 2024Q4

REPORT INFORMATION
  Report Type: Spontaneous
  Country: US (occurrence: US)
  Receive Date: 20241125
  Receipt Date: 20241125
  Transmission Date: 20250115
  Serious: No
  Sender: NOVARTIS
  Company Number: US-002147023-NVSC2024US224055

PATIENT
  Age: 30 Year
  Sex: Female
  Weight: 135 kg

DRUGS (3)
  1. VALSARTAN [Suspect]
     Active Substance: VALSARTAN
     Indication: Product used for unknown indication
     Dosage: UNK
     Route: 065
  2. ARTICHOKE [Concomitant]
     Active Substance: ARTICHOKE
     Indication: Supplementation therapy
     Dosage: UNK
     Route: 065
  3. DIETARY SUPPLEMENT\HERBALS\MILK THISTLE [Concomitant]
     Active Substance: MILK THISTLE
     Indication: Supplementation therapy
     Dosage: UNK
     Route: 065

REACTIONS (9)
  - Hepatic steatosis [Unknown]
  - Abdominal discomfort [Unknown]
  - Weight decreased [Unknown]
  - Dysgeusia [Unknown]
  - Tongue discolouration [Unknown]
  - Pain [Unknown]
  - Sensation of foreign body [Unknown]
  - Musculoskeletal discomfort [Unknown]
  - Abdominal pain upper [Unknown]
